FAERS Safety Report 15104768 (Version 1)
Quarter: 2018Q3

REPORT INFORMATION
  Report Type: Report from Study
  Country: US (occurrence: US)
  Receive Date: 20180703
  Receipt Date: 20180703
  Transmission Date: 20181010
  Serious: Yes (Other)
  Sender: FDA-Public Use
  Company Number: US-JAZZ-2018-US-009200

PATIENT
  Age: 55 Year
  Sex: Male

DRUGS (17)
  1. IPRATROPIUM [Concomitant]
     Active Substance: IPRATROPIUM
  2. FLUTICASONE PROPIONATE. [Concomitant]
     Active Substance: FLUTICASONE PROPIONATE
  3. SODIUM CHLORIDE. [Concomitant]
     Active Substance: SODIUM CHLORIDE
  4. METHOCARBAMOL. [Concomitant]
     Active Substance: METHOCARBAMOL
  5. BUPROPION HCL [Concomitant]
     Active Substance: BUPROPION HYDROCHLORIDE
  6. HYDROCODONE BITARTRATE AND ACETAMINOPHEN [Concomitant]
     Active Substance: ACETAMINOPHEN\HYDROCODONE BITARTRATE
  7. VITAMIN B12 [Concomitant]
     Active Substance: CYANOCOBALAMIN
  8. CETIRIZINE HCL [Concomitant]
     Active Substance: CETIRIZINE HYDROCHLORIDE
  9. PSYLLIUM FIBRE [Concomitant]
  10. MELOXICAM. [Concomitant]
     Active Substance: MELOXICAM
  11. VITAMIN D2 [Concomitant]
     Active Substance: ERGOCALCIFEROL
  12. IRON [Concomitant]
     Active Substance: IRON
  13. VITAMIN C [Concomitant]
     Active Substance: ASCORBIC ACID
  14. PROAIR HFA [Concomitant]
     Active Substance: ALBUTEROL SULFATE
  15. LISINOPRIL. [Concomitant]
     Active Substance: LISINOPRIL
  16. ATORVASTATIN [Concomitant]
     Active Substance: ATORVASTATIN
  17. XYREM [Suspect]
     Active Substance: SODIUM OXYBATE
     Indication: NARCOLEPSY
     Dosage: 2.25 G, BID
     Route: 048
     Dates: start: 201804

REACTIONS (2)
  - Tooth abscess [Unknown]
  - Tooth infection [Not Recovered/Not Resolved]

NARRATIVE: CASE EVENT DATE: 201805
